FAERS Safety Report 19459141 (Version 1)
Quarter: 2021Q2

REPORT INFORMATION
  Report Type: Spontaneous
  Country: US (occurrence: US)
  Receive Date: 20210624
  Receipt Date: 20210624
  Transmission Date: 20210717
  Serious: No
  Sender: FDA-Public Use
  Company Number: US-MYLANLABS-2021M1032519

PATIENT
  Sex: Female
  Weight: 67 kg

DRUGS (1)
  1. SEMGLEE [Suspect]
     Active Substance: INSULIN GLARGINE
     Indication: DIABETES MELLITUS
     Dosage: 100 INTERNATIONAL UNIT PER MILLILITRE, QD
     Route: 058
     Dates: start: 20210526

REACTIONS (4)
  - Device issue [Unknown]
  - Product storage error [Not Recovered/Not Resolved]
  - Product quality issue [Unknown]
  - Packaging design issue [Unknown]
